FAERS Safety Report 8606475 (Version 2)
Quarter: 2014Q1

REPORT INFORMATION
  Report Type: Spontaneous
  Country: US (occurrence: US)
  Receive Date: 20120608
  Receipt Date: 20140306
  Transmission Date: 20141002
  Serious: Yes (Death)
  Sender: FDA-Public Use
  Company Number: US-ASTRAZENECA-2012SE10766

PATIENT
  Age: 87 Year
  Sex: Female

DRUGS (5)
  1. PULMICORT RESPULES [Suspect]
     Indication: CHRONIC OBSTRUCTIVE PULMONARY DISEASE
     Dosage: EVERY 4 HOURS
     Route: 055
  2. PULMICORT RESPULES [Suspect]
     Indication: ASTHMA
     Dosage: EVERY 4 HOURS
     Route: 055
  3. PULMICORT RESPULES [Suspect]
     Indication: CHRONIC OBSTRUCTIVE PULMONARY DISEASE
     Dosage: 0.25MG TWICE A DAY, ONCE IN THE MORNING AND ONCE IN THE NIGHT
     Route: 055
  4. PULMICORT RESPULES [Suspect]
     Indication: ASTHMA
     Dosage: 0.25MG TWICE A DAY, ONCE IN THE MORNING AND ONCE IN THE NIGHT
     Route: 055
  5. ALBUTEROL [Concomitant]

REACTIONS (5)
  - Death [Fatal]
  - Dyspnoea [Unknown]
  - Off label use [Unknown]
  - Intentional drug misuse [Unknown]
  - Inappropriate schedule of drug administration [Unknown]
